FAERS Safety Report 6523658-X (Version None)
Quarter: 2009Q4

REPORT INFORMATION
  Report Type: 
  Country: None (occurrence: None)
  Receive Date: 20091231
  Receipt Date: 20091222
  Transmission Date: 20100525
  Serious: Yes (Other)
  Sender: FDA-Public Use
  Company Number: JP-JNJFOC-20091203157

PATIENT
  Age: 33 Year
  Sex: Female

DRUGS (3)
  1. CRAVIT [Suspect]
     Indication: CYSTITIS
     Route: 048
     Dates: start: 20091117, end: 20091117
  2. SOLU-CORTEF [Suspect]
     Indication: OROPHARYNGEAL DISCOMFORT
     Route: 042
  3. SOLU-CORTEF [Suspect]
     Indication: EYELID OEDEMA
     Route: 042

REACTIONS (5)
  - DYSPNOEA [None]
  - ERYTHEMA [None]
  - EYELID OEDEMA [None]
  - LARYNGEAL OEDEMA [None]
  - OROPHARYNGEAL DISCOMFORT [None]
